FAERS Safety Report 19223985 (Version 1)
Quarter: 2021Q2

REPORT INFORMATION
  Report Type: Spontaneous
  Country: US (occurrence: US)
  Receive Date: 20210505
  Receipt Date: 20210505
  Transmission Date: 20210717
  Serious: No
  Sender: FDA-Public Use
  Company Number: US-ROCHE-2564137

PATIENT
  Sex: Female

DRUGS (11)
  1. HYDROCHLOROTH [Concomitant]
     Active Substance: HYDROCHLOROTHIAZIDE
  2. GLUCOSAMINE [Concomitant]
     Active Substance: GLUCOSAMINE
  3. TUMS [Concomitant]
     Active Substance: CALCIUM CARBONATE
  4. ASPIRIN. [Concomitant]
     Active Substance: ASPIRIN
  5. LOSARTAN. [Concomitant]
     Active Substance: LOSARTAN
  6. ESBRIET [Suspect]
     Active Substance: PIRFENIDONE
     Indication: IDIOPATHIC PULMONARY FIBROSIS
     Route: 048
     Dates: start: 20161111
  7. ATORVASTATIN [Concomitant]
     Active Substance: ATORVASTATIN
  8. MAGNESIUM [Concomitant]
     Active Substance: MAGNESIUM
  9. ATENOLOL. [Concomitant]
     Active Substance: ATENOLOL
  10. BIOTIN [Concomitant]
     Active Substance: BIOTIN
  11. COQ [Concomitant]

REACTIONS (2)
  - No adverse event [Unknown]
  - Incorrect dose administered [Unknown]
